FAERS Safety Report 19212742 (Version 1)
Quarter: 2021Q2

REPORT INFORMATION
  Report Type: Spontaneous
  Country: PL (occurrence: PL)
  Receive Date: 20210504
  Receipt Date: 20210504
  Transmission Date: 20210717
  Serious: Yes (Hospitalization)
  Sender: FDA-Public Use
  Company Number: NVSC2021PL091432

PATIENT
  Age: 55 Year
  Sex: Male
  Weight: 85 kg

DRUGS (14)
  1. RAMIPRIL. [Suspect]
     Active Substance: RAMIPRIL
     Dosage: 2 DF (5 MG)
     Route: 065
     Dates: start: 201704
  2. BISOPROLOL [Suspect]
     Active Substance: BISOPROLOL
     Indication: PRODUCT USED FOR UNKNOWN INDICATION
     Dosage: 1 DF (5 MG)
     Route: 065
     Dates: start: 201701
  3. IVABRADINE [Concomitant]
     Active Substance: IVABRADINE
     Indication: PRODUCT USED FOR UNKNOWN INDICATION
     Dosage: 2 DF (5 MG)
     Route: 065
     Dates: start: 201709, end: 202003
  4. POLPRIL [Concomitant]
     Active Substance: RAMIPRIL
     Indication: PRODUCT USED FOR UNKNOWN INDICATION
     Dosage: UNK
     Route: 065
     Dates: end: 202005
  5. SACUBITRIL,VALSARTAN [Suspect]
     Active Substance: SACUBITRIL\VALSARTAN
     Dosage: 2X49/51MG
     Route: 065
     Dates: start: 202007
  6. AMIODARONE [Concomitant]
     Active Substance: AMIODARONE
     Indication: PRODUCT USED FOR UNKNOWN INDICATION
     Dosage: 1 DF (200 MG)
     Route: 065
     Dates: start: 202003
  7. TORASEMIDE [Suspect]
     Active Substance: TORSEMIDE
     Dosage: 1 DF (5 MG)
     Route: 065
     Dates: start: 202010
  8. DABIGATRAN [Concomitant]
     Active Substance: DABIGATRAN
     Indication: PRODUCT USED FOR UNKNOWN INDICATION
     Dosage: 2 DF (150 MG)
     Route: 065
     Dates: start: 201709
  9. DIGOXIN. [Concomitant]
     Active Substance: DIGOXIN
     Indication: PRODUCT USED FOR UNKNOWN INDICATION
     Dosage: 1 DF(1*0.1MG)
     Route: 065
     Dates: start: 202010, end: 202103
  10. BISOPROLOL [Suspect]
     Active Substance: BISOPROLOL
     Dosage: 2 DF (5 MG)
     Route: 065
     Dates: start: 201704
  11. TORASEMIDE [Suspect]
     Active Substance: TORSEMIDE
     Indication: PRODUCT USED FOR UNKNOWN INDICATION
     Dosage: 1 DF (5 MG)
     Route: 065
     Dates: start: 201701
  12. RAMIPRIL. [Suspect]
     Active Substance: RAMIPRIL
     Indication: PRODUCT USED FOR UNKNOWN INDICATION
     Dosage: 1 DF (5 MG)
     Route: 065
     Dates: start: 201701
  13. SACUBITRIL,VALSARTAN [Suspect]
     Active Substance: SACUBITRIL\VALSARTAN
     Indication: PRODUCT USED FOR UNKNOWN INDICATION
     Dosage: 2X24/25MG
     Route: 065
     Dates: start: 202005
  14. EPLERENONE. [Concomitant]
     Active Substance: EPLERENONE
     Indication: PRODUCT USED FOR UNKNOWN INDICATION
     Dosage: 1 DF (25 MG)
     Route: 065
     Dates: start: 201701

REACTIONS (11)
  - Cardiac failure chronic [Recovering/Resolving]
  - Medical device site discharge [Unknown]
  - Peripheral swelling [Recovered/Resolved]
  - Atrial fibrillation [Recovering/Resolving]
  - Heart rate irregular [Recovering/Resolving]
  - Medical device site infection [Recovered/Resolved]
  - N-terminal prohormone brain natriuretic peptide increased [Unknown]
  - Cardiac murmur [Unknown]
  - Decubitus ulcer [Recovered/Resolved]
  - Breath sounds abnormal [Unknown]
  - Palpitations [Recovering/Resolving]

NARRATIVE: CASE EVENT DATE: 201704
